FAERS Safety Report 12337957 (Version 2)
Quarter: 2016Q2

REPORT INFORMATION
  Report Type: Report from Study
  Country: RO (occurrence: RO)
  Receive Date: 20160505
  Receipt Date: 20160601
  Transmission Date: 20160815
  Serious: Yes (Death, Life-Threatening, Hospitalization, Other)
  Sender: FDA-Public Use
  Company Number: RO-ABBVIE-16P-135-1620501-00

PATIENT
  Age: 64 Year
  Sex: Female

DRUGS (3)
  1. VIEKIRAX [Suspect]
     Active Substance: OMBITASVIR\PARITAPREVIR\RITONAVIR
     Indication: HEPATIC CIRRHOSIS
     Dosage: 2-0-0 (2 IN THE MORNING)
     Route: 048
     Dates: start: 20160317
  2. EXVIERA [Suspect]
     Active Substance: DASABUVIR
     Indication: HEPATIC CIRRHOSIS
     Dosage: 1-0-1( 1 IN THE MORNING AND 1 IN THE EVENING)
     Route: 048
     Dates: start: 20160317
  3. RIBAVIRIN. [Concomitant]
     Active Substance: RIBAVIRIN
     Indication: HEPATIC CIRRHOSIS
     Route: 048
     Dates: start: 20160317

REACTIONS (7)
  - Cardio-respiratory arrest [Fatal]
  - Enterocolitis [Unknown]
  - Thrombocytopenia [Unknown]
  - Hypoglycaemia [Unknown]
  - Toxic encephalopathy [Unknown]
  - Acute kidney injury [Unknown]
  - Hepatic failure [Unknown]

NARRATIVE: CASE EVENT DATE: 20160429
